FAERS Safety Report 5465658-7 (Version None)
Quarter: 2007Q3

REPORT INFORMATION
  Report Type: 
  Country: None (occurrence: None)
  Receive Date: 20070924
  Receipt Date: 20070911
  Transmission Date: 20080115
  Serious: Yes (Other)
  Sender: FDA-Public Use
  Company Number: JP-ROCHE-490745

PATIENT
  Age: 6 Year
  Sex: Male
  Weight: 20 kg

DRUGS (7)
  1. TAMIFLU [Suspect]
     Dosage: FORM: DRY SYRUP.
     Route: 048
     Dates: start: 20060524, end: 20060524
  2. TAMIFLU [Suspect]
     Dosage: DOSE INCREASE.
     Route: 048
     Dates: start: 20060525, end: 20060528
  3. TAMIFLU [Suspect]
     Dosage: DOSE DECREASE.
     Route: 048
     Dates: start: 20060529, end: 20060529
  4. MEDICON [Concomitant]
     Route: 048
     Dates: start: 20060524, end: 20060529
  5. HUSCODE [Concomitant]
     Route: 048
     Dates: start: 20060524, end: 20060529
  6. ALIMEZINE [Concomitant]
     Route: 048
     Dates: start: 20060524, end: 20060529
  7. PARACET [Concomitant]
     Dosage: DRUG NAME REPORTED AS PARACETA.
     Route: 054

REACTIONS (3)
  - ABNORMAL BEHAVIOUR [None]
  - DEPRESSED LEVEL OF CONSCIOUSNESS [None]
  - FALL [None]
